FAERS Safety Report 4772318-4 (Version None)
Quarter: 2005Q3

REPORT INFORMATION
  Report Type: 
  Country: None (occurrence: None)
  Receive Date: 20050919
  Receipt Date: 20050726
  Transmission Date: 20060218
  Serious: No
  Sender: FDA-Public Use
  Company Number: US-BRISTOL-MYERS SQUIBB COMPANY-13052733

PATIENT
  Age: 74 Year
  Sex: Male

DRUGS (12)
  1. DEFINITY [Suspect]
     Route: 042
     Dates: start: 20050725, end: 20050725
  2. COREG [Concomitant]
     Route: 048
  3. LIPITOR [Concomitant]
  4. NITROSTAT [Concomitant]
  5. NEXIUM [Concomitant]
  6. LASIX [Concomitant]
  7. VASOTEC [Concomitant]
  8. VITAMIN D3 [Concomitant]
  9. MULTI-VITAMIN [Concomitant]
  10. ASPIRIN [Concomitant]
  11. IRON [Concomitant]
  12. ISORDIL [Concomitant]

REACTIONS (1)
  - MUSCLE SPASMS [None]
